FAERS Safety Report 6279739-1 (Version None)
Quarter: 2009Q3

REPORT INFORMATION
  Report Type: 
  Country: None (occurrence: None)
  Receive Date: 20090723
  Receipt Date: 20090720
  Transmission Date: 20100115
  Serious: Yes (Other)
  Sender: FDA-Public Use
  Company Number: GB-ROXANE LABORATORIES, INC.-2009-RO-00716RO

PATIENT
  Age: 50 Year
  Sex: Male

DRUGS (2)
  1. AMLODIPINE [Suspect]
     Indication: HYPERTENSION
  2. ACE INHIBITOR [Concomitant]
     Indication: HYPERTENSION

REACTIONS (4)
  - HAEMATOSPERMIA [None]
  - HAEMATURIA [None]
  - PURPURA [None]
  - SCHAMBERG'S DISEASE [None]
